FAERS Safety Report 5499867-8 (Version None)
Quarter: 2007Q4

REPORT INFORMATION
  Report Type: 
  Country: None (occurrence: None)
  Receive Date: 20071026
  Receipt Date: 20071016
  Transmission Date: 20080405
  Serious: Yes (Death, Other)
  Sender: FDA-Public Use
  Company Number: JP-PFIZER INC-2007086536

PATIENT
  Age: 61 Year
  Sex: Male

DRUGS (3)
  1. SOLU-MEDROL [Suspect]
     Route: 042
  2. PLATELETS [Concomitant]
     Route: 042
  3. NEUPOGEN [Concomitant]
     Route: 042

REACTIONS (2)
  - APLASTIC ANAEMIA [None]
  - PULMONARY MYCOSIS [None]
